FAERS Safety Report 10311263 (Version 1)
Quarter: 2014Q3

REPORT INFORMATION
  Report Type: Spontaneous
  Country: US (occurrence: US)
  Receive Date: 20140717
  Receipt Date: 20140717
  Transmission Date: 20150326
  Serious: Yes (Other)
  Sender: FDA-Public Use
  Company Number: CHPA2014US009504

PATIENT
  Age: 93 Year
  Sex: Female

DRUGS (1)
  1. EX-LAX REGULAR STRENGTH CHOCOLATED STIMULANT LAXATIVE [Suspect]
     Active Substance: SENNOSIDES
     Dosage: UNK
     Route: 048

REACTIONS (3)
  - Fall [Unknown]
  - Incorrect drug administration duration [Unknown]
  - Transient ischaemic attack [Unknown]
